FAERS Safety Report 7487945-3 (Version None)
Quarter: 2011Q2

REPORT INFORMATION
  Report Type: 
  Country: None (occurrence: None)
  Receive Date: 20110518
  Receipt Date: 20110509
  Transmission Date: 20111010
  Serious: Yes (Disabling, Other)
  Sender: FDA-Public Use
  Company Number: US-ASTRAZENECA-2011SE01743

PATIENT
  Age: 64 Year
  Sex: Female

DRUGS (3)
  1. PRILOSEC [Concomitant]
  2. ZANTAC [Concomitant]
  3. NEXIUM [Suspect]
     Route: 048

REACTIONS (4)
  - INTERVERTEBRAL DISC PROTRUSION [None]
  - INTERVERTEBRAL DISC DEGENERATION [None]
  - SPINAL COLUMN STENOSIS [None]
  - GENERAL PHYSICAL HEALTH DETERIORATION [None]
